FAERS Safety Report 8857248 (Version 5)
Quarter: 2013Q1

REPORT INFORMATION
  Report Type: Spontaneous
  Country: PL (occurrence: PL)
  Receive Date: 20121024
  Receipt Date: 20130326
  Transmission Date: 20140127
  Serious: Yes (Hospitalization, Other)
  Sender: FDA-Public Use
  Company Number: PL-AMGEN-POLSP2012066736

PATIENT
  Age: 57 Year
  Sex: Female

DRUGS (4)
  1. ENBREL [Suspect]
     Indication: RHEUMATOID ARTHRITIS
     Dosage: 50 MG, WEEKLY
     Route: 058
     Dates: start: 20120724, end: 20121003
  2. METYPRED                           /00049601/ [Concomitant]
     Dosage: 4 MG, UNK
  3. BISOCARD [Concomitant]
     Dosage: 5 MG, UNK
  4. DIAPREL MR [Concomitant]
     Dosage: UNK

REACTIONS (6)
  - Muscular weakness [Unknown]
  - Gait disturbance [Unknown]
  - Blood creatine phosphokinase increased [Unknown]
  - Blood creatine phosphokinase MB [Unknown]
  - Myoglobinaemia [Unknown]
  - Myositis [Recovering/Resolving]
